FAERS Safety Report 5817507-2 (Version None)
Quarter: 2008Q3

REPORT INFORMATION
  Report Type: 
  Country: None (occurrence: None)
  Receive Date: 20080722
  Receipt Date: 20080709
  Transmission Date: 20090109
  Serious: Yes (Other)
  Sender: FDA-Public Use
  Company Number: PHEH2002US05793

PATIENT
  Age: 35 Year
  Sex: Female
  Weight: 98.866 kg

DRUGS (7)
  1. GLEEVEC [Suspect]
     Indication: GASTROINTESTINAL STROMAL TUMOUR
     Route: 048
     Dates: start: 20020301, end: 20020621
  2. COUMADIN [Suspect]
  3. LORAZEPAM [Concomitant]
  4. PROCHLORPERAZINE [Concomitant]
  5. DARVOCET-N 100 [Concomitant]
  6. LOVENOX [Concomitant]
  7. LEVAQUIN [Concomitant]

REACTIONS (3)
  - ABORTION INDUCED [None]
  - DRUG EXPOSURE DURING PREGNANCY [None]
  - ULTRASOUND ANTENATAL SCREEN ABNORMAL [None]
